FAERS Safety Report 8510900-9 (Version None)
Quarter: 2012Q3

REPORT INFORMATION
  Report Type: 
  Country: None (occurrence: None)
  Receive Date: 20120716
  Receipt Date: 20120710
  Transmission Date: 20120928
  Serious: Yes (Death)
  Sender: FDA-Public Use
  Company Number: US-CELGENEUS-163-20785-12061588

PATIENT
  Sex: Female

DRUGS (13)
  1. CYTOXAN [Concomitant]
     Dosage: 50-100
     Route: 065
     Dates: start: 20100501, end: 20120601
  2. PREDNISONE [Concomitant]
     Dosage: 50
     Route: 065
     Dates: start: 20100501, end: 20120601
  3. COREG [Concomitant]
     Route: 065
  4. THALOMID [Suspect]
     Dosage: 100 MILLIGRAM
     Route: 048
     Dates: start: 20120213, end: 20120610
  5. THALOMID [Suspect]
     Dosage: 100 MILLIGRAM
     Route: 048
     Dates: start: 20120206, end: 20120210
  6. LANOXIN [Concomitant]
     Dosage: .25
     Route: 065
     Dates: start: 20090101, end: 20120601
  7. NITROFURANTOIN MACROCRYSTAL [Concomitant]
     Route: 065
  8. THALOMID [Suspect]
     Dosage: 100 MILLIGRAM
     Route: 048
     Dates: start: 20111110, end: 20111207
  9. PRADAXA [Concomitant]
     Route: 065
  10. ADRIAMYCIN PFS [Concomitant]
     Dosage: 40
     Route: 041
     Dates: start: 20120605
  11. ZOMETA [Concomitant]
     Dosage: 4
     Route: 041
     Dates: start: 20100501, end: 20120601
  12. DILTIAZEM [Concomitant]
     Route: 065
  13. LANTUS [Concomitant]
     Route: 065

REACTIONS (2)
  - MULTIPLE MYELOMA [None]
  - CARDIAC FAILURE [None]
